FAERS Safety Report 11467846 (Version 3)
Quarter: 2015Q4

REPORT INFORMATION
  Report Type: Spontaneous
  Country: US (occurrence: US)
  Receive Date: 20150908
  Receipt Date: 20151211
  Transmission Date: 20160304
  Serious: Yes (Other)
  Sender: FDA-Public Use
  Company Number: US-BAYER-2015-411504

PATIENT
  Age: 53 Year
  Sex: Male

DRUGS (1)
  1. KOGENATE FS [Suspect]
     Active Substance: ANTIHEMOPHILIC FACTOR, HUMAN RECOMBINANT
     Indication: FACTOR VIII DEFICIENCY
     Dosage: 3300 UNITS Q 3-5 TIMES PER MONTH.REPEAT ONE DOSE AT 24 HOURS IF NEEDED.
     Route: 042
     Dates: start: 20150722

REACTIONS (4)
  - Haemorrhage [None]
  - Limb operation [None]
  - Post procedural haemorrhage [Recovered/Resolved]
  - Haemarthrosis [None]

NARRATIVE: CASE EVENT DATE: 20150825
